FAERS Safety Report 4589817-0 (Version None)
Quarter: 2005Q1

REPORT INFORMATION
  Report Type: 
  Country: None (occurrence: None)
  Receive Date: 20050223
  Receipt Date: 20050218
  Transmission Date: 20050727
  Serious: Yes (Other)
  Sender: FDA-Public Use
  Company Number: DE-GLAXOSMITHKLINE-D0045937A

PATIENT
  Age: 32 Year
  Sex: Male

DRUGS (4)
  1. SOSTRIL [Suspect]
     Dosage: 300MG PER DAY
     Route: 048
     Dates: start: 20021003, end: 20021024
  2. ZYPREXA [Suspect]
     Route: 065
     Dates: start: 20021003, end: 20021024
  3. DIPIPERON [Suspect]
     Dosage: 40MG PER DAY
     Route: 065
     Dates: start: 20021015, end: 20021024
  4. LORAZEPAM [Concomitant]
     Dosage: 2MG PER DAY
     Route: 065
     Dates: start: 20021004, end: 20021018

REACTIONS (3)
  - GASTROENTERITIS [None]
  - HEPATIC ENZYME INCREASED [None]
  - NAUSEA [None]
